FAERS Safety Report 9512268 (Version 1)
Quarter: 2013Q3

REPORT INFORMATION
  Report Type: Spontaneous
  Country: US (occurrence: US)
  Receive Date: 20130910
  Receipt Date: 20130910
  Transmission Date: 20140515
  Serious: No
  Sender: FDA-Public Use
  Company Number: US-SANOFI-AVENTIS-2013SA076024

PATIENT
  Sex: Male

DRUGS (2)
  1. IRBESARTAN [Suspect]
     Indication: PRODUCT USED FOR UNKNOWN INDICATION
     Route: 065
  2. AMLODIPINE [Concomitant]

REACTIONS (3)
  - Palpitations [Unknown]
  - Visual impairment [Unknown]
  - Chest pain [Unknown]
